FAERS Safety Report 5032773-1 (Version None)
Quarter: 2006Q2

REPORT INFORMATION
  Report Type: 
  Country: None (occurrence: None)
  Receive Date: 20060620
  Receipt Date: 20060609
  Transmission Date: 20061013
  Serious: Yes (Death, Hospitalization, Other)
  Sender: FDA-Public Use
  Company Number: 2005103222

PATIENT
  Age: 44 Year
  Sex: Male

DRUGS (9)
  1. BEXTRA [Suspect]
     Indication: ILL-DEFINED DISORDER
     Dosage: (100 MG,)
     Dates: start: 20020601, end: 20031114
  2. VIOXX [Suspect]
     Indication: ILL-DEFINED DISORDER
     Dosage: 25 MG (25 MG, 1 IN 1 D),
     Dates: start: 20000401, end: 20031101
  3. ACCUPRIL [Concomitant]
  4. COREG [Concomitant]
  5. ASPIRIN [Concomitant]
  6. ZOCOR [Concomitant]
  7. PLAVIX [Concomitant]
  8. OXYCONTIN [Concomitant]
  9. WELLBUTRIN [Concomitant]

REACTIONS (2)
  - CARDIAC ARREST [None]
  - MYOCARDIAL INFARCTION [None]
